FAERS Safety Report 13309945 (Version 1)
Quarter: 2017Q1

REPORT INFORMATION
  Report Type: Report from Study
  Country: CA (occurrence: CA)
  Receive Date: 20170308
  Receipt Date: 20170308
  Transmission Date: 20170428
  Serious: Yes (Other)
  Sender: FDA-Public Use
  Company Number: CA-GILEAD-2017-0260940

PATIENT
  Age: 52 Year
  Sex: Male

DRUGS (2)
  1. IBAVYR [Concomitant]
     Active Substance: RIBAVIRIN
     Indication: HEPATITIS C
  2. SOFOSBUVIR W/VELPATASVIR [Suspect]
     Active Substance: SOFOSBUVIR\VELPATASVIR
     Indication: CHRONIC HEPATITIS C
     Dosage: 1 DF, UNK
     Route: 048
     Dates: start: 20170112

REACTIONS (3)
  - Pruritus [Unknown]
  - Haemorrhagic diathesis [Unknown]
  - Skin haemorrhage [Unknown]
